FAERS Safety Report 6571514-3 (Version None)
Quarter: 2010Q1

REPORT INFORMATION
  Report Type: 
  Country: None (occurrence: None)
  Receive Date: 20100205
  Receipt Date: 20081219
  Transmission Date: 20100710
  Serious: Yes (Death)
  Sender: FDA-Public Use
  Company Number: CO-PFIZER INC-2008158443

PATIENT
  Sex: Female

DRUGS (3)
  1. LIPITOR [Suspect]
     Indication: HYPERLIPIDAEMIA
     Dosage: 10 MG, 1X/DAY
     Route: 048
     Dates: start: 20060803
  2. NORVASC [Suspect]
     Indication: HYPERTENSION
     Dosage: 5 MG, 1X/DAY
     Route: 048
     Dates: start: 20060803
  3. OLMETEC [Suspect]
     Indication: HYPERTENSION
     Route: 048

REACTIONS (1)
  - DEATH [None]
